FAERS Safety Report 20369644 (Version 1)
Quarter: 2022Q1

REPORT INFORMATION
  Report Type: Spontaneous
  Country: PT (occurrence: PT)
  Receive Date: 20220124
  Receipt Date: 20220124
  Transmission Date: 20220423
  Serious: Yes (Hospitalization, Other)
  Sender: FDA-Public Use
  Company Number: PT-MLMSERVICE-20220111-3312092-1

PATIENT
  Age: 64 Year
  Sex: Male

DRUGS (2)
  1. METHYLPREDNISOLONE SODIUM SUCCINATE [Suspect]
     Active Substance: METHYLPREDNISOLONE SODIUM SUCCINATE
     Indication: Encephalitis autoimmune
     Dosage: UNK
     Route: 042
  2. QUETIAPINE [Concomitant]
     Active Substance: QUETIAPINE
     Indication: Psychotic disorder
     Dosage: 800 MG

REACTIONS (5)
  - Psychotic disorder [Recovering/Resolving]
  - Condition aggravated [Recovering/Resolving]
  - Confusional state [Not Recovered/Not Resolved]
  - Off label use [Unknown]
  - Drug ineffective for unapproved indication [Unknown]
